FAERS Safety Report 9861923 (Version 2)
Quarter: 2014Q1

REPORT INFORMATION
  Report Type: Spontaneous
  Country: CA (occurrence: CA)
  Receive Date: 20140203
  Receipt Date: 20140214
  Transmission Date: 20141002
  Serious: Yes (Other)
  Sender: FDA-Public Use
  Company Number: CA-JNJFOC-20140113317

PATIENT
  Sex: Male
  Weight: 86.18 kg

DRUGS (3)
  1. RISPERDAL CONSTA [Suspect]
     Indication: SCHIZOPHRENIA
     Route: 030
  2. RISPERDAL CONSTA [Suspect]
     Indication: SCHIZOPHRENIA
     Route: 030
  3. RISPERDAL CONSTA [Suspect]
     Indication: SCHIZOPHRENIA
     Route: 030
     Dates: start: 2007

REACTIONS (10)
  - Spinal fracture [Unknown]
  - Suicide attempt [Unknown]
  - Tardive dyskinesia [Not Recovered/Not Resolved]
  - Depression [Unknown]
  - Inappropriate schedule of drug administration [Unknown]
  - Mania [Unknown]
  - Amnesia [Not Recovered/Not Resolved]
  - Muscle twitching [Unknown]
  - Mental impairment [Unknown]
  - Adverse event [Unknown]
